FAERS Safety Report 21461793 (Version 1)
Quarter: 2022Q4

REPORT INFORMATION
  Report Type: Report from Study
  Country: US (occurrence: US)
  Receive Date: 20221015
  Receipt Date: 20221015
  Transmission Date: 20230112
  Serious: Yes (Hospitalization)
  Sender: FDA-Public Use
  Company Number: US-ABBVIE-4156726

PATIENT
  Age: 41 Year
  Sex: Male

DRUGS (2)
  1. RINVOQ [Suspect]
     Active Substance: UPADACITINIB
     Indication: Rheumatoid arthritis
     Dosage: STRENGTH: 15 MG
     Route: 048
     Dates: start: 20221003, end: 20221004
  2. RINVOQ [Suspect]
     Active Substance: UPADACITINIB
     Indication: Rheumatoid arthritis
     Dosage: STRENGTH: 15 MG?FIRST ADMIN DATE: OCT 2022
     Route: 048

REACTIONS (5)
  - Hospitalisation [Recovered/Resolved]
  - Neuropathy peripheral [Unknown]
  - Vomiting [Unknown]
  - Walking aid user [Unknown]
  - Illness [Unknown]

NARRATIVE: CASE EVENT DATE: 20221001
